FAERS Safety Report 11695331 (Version 7)
Quarter: 2018Q3

REPORT INFORMATION
  Report Type: Spontaneous
  Country: AT (occurrence: AT)
  Receive Date: 20151103
  Receipt Date: 20180801
  Transmission Date: 20181010
  Serious: Yes (Other)
  Sender: FDA-Public Use
  Company Number: AT-ROCHE-1654413

PATIENT
  Age: 46 Year
  Sex: Female
  Weight: 80 kg

DRUGS (2)
  1. MABTHERA [Suspect]
     Active Substance: RITUXIMAB
     Indication: GLOMERULONEPHRITIS MINIMAL LESION
     Route: 042
     Dates: start: 20150710, end: 20150710
  2. MABTHERA [Suspect]
     Active Substance: RITUXIMAB
     Dosage: SINGLE DOSE
     Route: 042
     Dates: start: 201409, end: 201409

REACTIONS (1)
  - Sarcoidosis [Recovered/Resolved]

NARRATIVE: CASE EVENT DATE: 20151030
